FAERS Safety Report 18564567 (Version 2)
Quarter: 2020Q4

REPORT INFORMATION
  Report Type: Report from Study
  Country: US (occurrence: US)
  Receive Date: 20201201
  Receipt Date: 20201217
  Transmission Date: 20210114
  Serious: Yes (Hospitalization, Other)
  Sender: FDA-Public Use
  Company Number: US-SHIRE-US202000158

PATIENT
  Sex: Female

DRUGS (1)
  1. HUMAN NORMAL IMMUNOGLOBULIN; LIQUID [Suspect]
     Active Substance: HUMAN IMMUNOGLOBULIN G
     Indication: IMMUNODEFICIENCY COMMON VARIABLE
     Dosage: UNK, UNKNOWN
     Route: 042

REACTIONS (15)
  - Glaucoma [Unknown]
  - Dysphagia [Unknown]
  - Hiatus hernia [Unknown]
  - Headache [Unknown]
  - Nasopharyngitis [Unknown]
  - Gastrooesophageal reflux disease [Unknown]
  - Ulcer [Unknown]
  - Pyrexia [Unknown]
  - Staphylococcal infection [Unknown]
  - Liver function test decreased [Unknown]
  - Fall [Unknown]
  - Deafness [Unknown]
  - Rotator cuff syndrome [Unknown]
  - Sinusitis [Unknown]
  - Medial tibial stress syndrome [Unknown]
